FAERS Safety Report 9129027 (Version 2)
Quarter: 2013Q2

REPORT INFORMATION
  Report Type: Spontaneous
  Country: US (occurrence: US)
  Receive Date: 20130125
  Receipt Date: 20130426
  Transmission Date: 20140414
  Serious: Yes (Other)
  Sender: FDA-Public Use
  Company Number: US-ASTRAZENECA-2013SE04189

PATIENT
  Age: 903 Month
  Sex: Female
  Weight: 66.2 kg

DRUGS (7)
  1. SYMBICORT [Suspect]
     Indication: NODULE
     Dosage: 160/4.5 UG TWO PUFFS TWICE A DAY
     Route: 055
     Dates: start: 201203
  2. LISINOPRIL [Suspect]
     Indication: HYPERTENSION
     Route: 048
  3. CRESTOR [Suspect]
     Indication: BLOOD CHOLESTEROL INCREASED
     Route: 048
  4. LEVOTHYROXINE [Concomitant]
     Indication: THYROID DISORDER
     Route: 048
  5. TRIAM/HCTZ [Concomitant]
     Indication: HYPERTENSION
     Dosage: 37.5/25 MG, DAILY
     Route: 048
  6. CARVEDILOL [Concomitant]
     Indication: PALPITATIONS
     Dosage: TWO AM AND TWO PM
     Route: 048
  7. CALCIUM VITAMIN D [Concomitant]
     Indication: SUPPLEMENTATION THERAPY
     Route: 048

REACTIONS (4)
  - Fall [Recovering/Resolving]
  - Upper limb fracture [Recovering/Resolving]
  - Oropharyngeal pain [Recovering/Resolving]
  - Off label use [Unknown]
